FAERS Safety Report 6309111-7 (Version None)
Quarter: 2009Q3

REPORT INFORMATION
  Report Type: 
  Country: None (occurrence: None)
  Receive Date: 20090812
  Receipt Date: 20090729
  Transmission Date: 20100115
  Serious: Yes (Hospitalization)
  Sender: FDA-Public Use
  Company Number: 1000007986

PATIENT
  Age: 54 Year
  Sex: Male

DRUGS (7)
  1. ESCITALOPRAM [Suspect]
     Dosage: 20 MG (20 MG,1 IN 1 D),ORAL
     Route: 048
     Dates: start: 20090608, end: 20090708
  2. ZYPREXA [Suspect]
     Dosage: 10 MG (10 MG,1 IN 1 D),ORAL
     Route: 048
     Dates: start: 20090608, end: 20090708
  3. STILNOX [Concomitant]
  4. LERCAN [Concomitant]
  5. PARIET [Concomitant]
  6. FLONASE [Concomitant]
  7. FUROSEMIDE [Concomitant]

REACTIONS (3)
  - AMNESIA [None]
  - EPILEPSY [None]
  - MALAISE [None]
